FAERS Safety Report 19258453 (Version 2)
Quarter: 2021Q2

REPORT INFORMATION
  Report Type: Spontaneous
  Country: US (occurrence: US)
  Receive Date: 20210514
  Receipt Date: 20210604
  Transmission Date: 20210717
  Serious: Yes (Hospitalization, Other)
  Sender: FDA-Public Use
  Company Number: US-BECTON DICKINSON-US-BD-21-000123

PATIENT
  Age: 27 Year
  Sex: Female

DRUGS (1)
  1. CHLORAPREP WITH TINT [Suspect]
     Active Substance: CHLORHEXIDINE GLUCONATE\ISOPROPYL ALCOHOL
     Indication: INFECTION PROPHYLAXIS
     Dosage: 3 MILLILITER, UNK
     Route: 065
     Dates: start: 20210421

REACTIONS (1)
  - Necrotising soft tissue infection [Recovering/Resolving]

NARRATIVE: CASE EVENT DATE: 20210424
